FAERS Safety Report 14963583 (Version 1)
Quarter: 2018Q2

REPORT INFORMATION
  Report Type: Spontaneous
  Country: FR (occurrence: FR)
  Receive Date: 20180601
  Receipt Date: 20180601
  Transmission Date: 20180711
  Serious: Yes (Hospitalization)
  Sender: FDA-Public Use
  Company Number: FR-TEVA-2018-FR-900868

PATIENT
  Age: 69 Year
  Sex: Female
  Weight: 50.1 kg

DRUGS (2)
  1. UN-ALFA 1 MICROGRAM, ORAL CAPSULE [Suspect]
     Active Substance: ALFACALCIDOL
     Indication: PARATHYROIDECTOMY
     Dosage: 1 DOSAGE FORMS DAILY;
     Route: 048
     Dates: start: 2006, end: 20170622
  2. ACTONEL [Suspect]
     Active Substance: RISEDRONATE SODIUM
     Route: 048

REACTIONS (1)
  - Hypercalcaemia [Recovered/Resolved]

NARRATIVE: CASE EVENT DATE: 20170622
